FAERS Safety Report 4569537-9 (Version None)
Quarter: 2005Q1

REPORT INFORMATION
  Report Type: 
  Country: None (occurrence: None)
  Receive Date: 20050201
  Receipt Date: 20050118
  Transmission Date: 20050727
  Serious: Yes (Disabling)
  Sender: FDA-Public Use
  Company Number: 2004GB03090

PATIENT
  Age: 68 Year
  Sex: Female
  Weight: 82.5547 kg

DRUGS (1)
  1. LOSEC [Suspect]
     Indication: VAGINAL DISCHARGE
     Dosage: 20 MG DAILY PO
     Route: 048
     Dates: start: 19970311, end: 20040213

REACTIONS (3)
  - ANAEMIA MACROCYTIC [None]
  - DIZZINESS [None]
  - VITAMIN B12 DEFICIENCY [None]
